FAERS Safety Report 8084594-3 (Version None)
Quarter: 2012Q1

REPORT INFORMATION
  Report Type: 
  Country: None (occurrence: None)
  Receive Date: 20120128
  Receipt Date: 20110330
  Transmission Date: 20120608
  Serious: No
  Sender: FDA-Public Use
  Company Number: US-ABBOTT-11P-163-0715256-00

PATIENT
  Age: 31 Year
  Sex: Female

DRUGS (3)
  1. ALDOMET [Concomitant]
     Indication: BLOOD PRESSURE
     Dosage: 500MG DAILY
  2. VENTOLIN [Concomitant]
     Indication: ASTHMA
     Dosage: PRN
     Route: 055
  3. HUMIRA [Suspect]
     Indication: PSORIASIS
     Dates: start: 20110301

REACTIONS (4)
  - INJECTION SITE NODULE [None]
  - INJECTION SITE PRURITUS [None]
  - INJECTION SITE WARMTH [None]
  - INJECTION SITE ERYTHEMA [None]
